FAERS Safety Report 19960303 (Version 1)
Quarter: 2021Q4

REPORT INFORMATION
  Report Type: Spontaneous
  Country: FR (occurrence: FR)
  Receive Date: 20211015
  Receipt Date: 20211015
  Transmission Date: 20220303
  Serious: Yes (Hospitalization)
  Sender: FDA-Public Use
  Company Number: None

PATIENT
  Age: 66 Year
  Sex: Male

DRUGS (6)
  1. COMIRNATY [Suspect]
     Active Substance: TOZINAMERAN
     Indication: COVID-19 immunisation
     Dosage: DOSE 1,SINGLE
     Route: 030
     Dates: start: 202108, end: 202108
  2. CELEBREX [Suspect]
     Active Substance: CELECOXIB
     Indication: Arthritis
     Dosage: UNK
     Route: 048
     Dates: start: 20210817, end: 20210822
  3. TRAMADOL HYDROCHLORIDE [Suspect]
     Active Substance: TRAMADOL HYDROCHLORIDE
     Indication: Cervicobrachial syndrome
     Dosage: UNK
     Route: 048
     Dates: start: 20210817, end: 20210822
  4. LAMALINE (ACETAMINOPHEN\CAFFEINE\OPIUM) [Suspect]
     Active Substance: ACETAMINOPHEN\CAFFEINE\OPIUM
     Indication: Cervicobrachial syndrome
     Dosage: UNK
     Route: 048
     Dates: start: 20210817, end: 20210822
  5. DOLIPRANE [Suspect]
     Active Substance: ACETAMINOPHEN
     Indication: Cervicobrachial syndrome
     Dosage: UNK
     Route: 048
     Dates: start: 20210817, end: 20210822
  6. TRIUMEQ [Concomitant]
     Active Substance: ABACAVIR SULFATE\DOLUTEGRAVIR SODIUM\LAMIVUDINE
     Dosage: UNK

REACTIONS (4)
  - Jaundice cholestatic [Recovering/Resolving]
  - Hepatic cytolysis [Recovering/Resolving]
  - Faeces discoloured [Unknown]
  - Chromaturia [Unknown]

NARRATIVE: CASE EVENT DATE: 20210822
